FAERS Safety Report 4990043-1 (Version None)
Quarter: 2006Q2

REPORT INFORMATION
  Report Type: 
  Country: None (occurrence: None)
  Receive Date: 20060503
  Receipt Date: 20060419
  Transmission Date: 20061013
  Serious: Yes (Death, Hospitalization, Other)
  Sender: FDA-Public Use
  Company Number: US-AMGEN-US177077

PATIENT
  Age: 56 Year
  Sex: Male

DRUGS (3)
  1. ENBREL [Suspect]
     Indication: RHEUMATOID ARTHRITIS
  2. PREDNISONE TAB [Concomitant]
  3. LEFLUNOMIDE [Concomitant]

REACTIONS (3)
  - MYCOBACTERIUM ABSCESSUS INFECTION [None]
  - PNEUMOTHORAX [None]
  - PULMONARY GRANULOMA [None]
